FAERS Safety Report 16982998 (Version 1)
Quarter: 2020Q3

REPORT INFORMATION
  Report Type: Spontaneous
  Country: BE (occurrence: BE)
  Receive Date: 20191101
  Receipt Date: 20191101
  Transmission Date: 20201105
  Serious: Yes (Hospitalization)
  Sender: FDA-Public Use
  Company Number: BE-FRESENIUS KABI-FK201912012

PATIENT
  Age: 63 Year
  Sex: Female
  Weight: 53 kg

DRUGS (5)
  1. RACECADOTRIL [Concomitant]
     Active Substance: RACECADOTRIL
     Indication: PROPHYLAXIS
     Dosage: 01 FULL DOSE. LATENCY FIRST AND LAST DOSE: 06 DAYS
     Route: 065
     Dates: start: 201903
  2. DEXPANTHENOL. [Concomitant]
     Active Substance: DEXPANTHENOL
     Indication: PROPHYLAXIS
     Route: 065
     Dates: start: 201903
  3. CARBOPLATIN (MANUFACTURER UNKNOWN) [Suspect]
     Active Substance: CARBOPLATIN
     Indication: CERVIX CANCER METASTATIC
     Dosage: 5 AUC, 1Q3W)
     Route: 041
     Dates: start: 20191009
  4. ASTEMIZOLE [Concomitant]
     Active Substance: ASTEMIZOLE
     Indication: PROPHYLAXIS
     Route: 065
     Dates: start: 2018
  5. TISOTUMAB VEDOTIN. [Suspect]
     Active Substance: TISOTUMAB VEDOTIN
     Indication: CERVIX CANCER METASTATIC
     Dosage: 2 MG/KG, 1Q3W
     Route: 041
     Dates: start: 20191009

REACTIONS (1)
  - Intestinal obstruction [Not Recovered/Not Resolved]

NARRATIVE: CASE EVENT DATE: 20191014
